FAERS Safety Report 6636932-3 (Version None)
Quarter: 2010Q1

REPORT INFORMATION
  Report Type: 
  Country: None (occurrence: None)
  Receive Date: 20100316
  Receipt Date: 20100302
  Transmission Date: 20100710
  Serious: Yes (Other)
  Sender: FDA-Public Use
  Company Number: US-ELI_LILLY_AND_COMPANY-US201003001750

PATIENT
  Age: 65 Year
  Sex: Male

DRUGS (2)
  1. EFFIENT [Suspect]
     Indication: STENT PLACEMENT
     Dosage: UNK, UNKNOWN
     Route: 065
  2. PLAVIX [Concomitant]
     Dosage: UNK, UNKNOWN
     Route: 065

REACTIONS (1)
  - CEREBROVASCULAR ACCIDENT [None]
